FAERS Safety Report 4379119-X (Version None)
Quarter: 2004Q2

REPORT INFORMATION
  Report Type: 
  Country: None (occurrence: None)
  Receive Date: 20040610
  Receipt Date: 20040528
  Transmission Date: 20050107
  Serious: Yes (Hospitalization, Other)
  Sender: FDA-Public Use
  Company Number: US-JNJFOC-20040101172

PATIENT
  Age: 34 Year
  Sex: Female

DRUGS (2)
  1. ORTHO EVRA [Suspect]
     Indication: CONTRACEPTION
     Dosage: 1 DOSE(S), 3 IN 4 WEEK, TRANSDERMAL
     Route: 062
     Dates: start: 20030101
  2. ORAL CONTRACEPTIVE NOS (ORAL CONTRACEPTIVE NOS) UNSPECIFIED [Suspect]
     Indication: CONTRACEPTION
     Dosage: ORAL
     Route: 048

REACTIONS (4)
  - ABDOMINAL NEOPLASM [None]
  - COLON NEOPLASM [None]
  - CONSTIPATION [None]
  - PAIN [None]
